FAERS Safety Report 15576782 (Version 2)
Quarter: 2019Q3

REPORT INFORMATION
  Report Type: Spontaneous
  Country: US (occurrence: US)
  Receive Date: 20181101
  Receipt Date: 20190918
  Transmission Date: 20191004
  Serious: No
  Sender: FDA-Public Use
  Company Number: PHEH2018US045262

PATIENT
  Sex: Male

DRUGS (10)
  1. ABVD [Suspect]
     Active Substance: BLEOMYCIN\DACARBAZINE\DOXORUBICIN\VINBLASTINE
     Indication: PRODUCT USED FOR UNKNOWN INDICATION
     Dosage: UNK
     Route: 065
  2. BRENTUXIMAB [Suspect]
     Active Substance: BRENTUXIMAB VEDOTIN
     Indication: PRODUCT USED FOR UNKNOWN INDICATION
     Dosage: UNK
     Route: 065
     Dates: start: 20110503
  3. EVEROLIMUS. [Suspect]
     Active Substance: EVEROLIMUS
     Indication: TRANSPLANT
     Dosage: UNK, TWO WEEKS
     Route: 065
     Dates: start: 2014
  4. PEMBROLIZUMAB. [Suspect]
     Active Substance: PEMBROLIZUMAB
     Indication: PRODUCT USED FOR UNKNOWN INDICATION
     Dosage: UNK, 2 DOSES RECEIVED, STOPPED D/T PROGRESSIVE DISEASE
     Route: 065
     Dates: start: 20180911, end: 20181002
  5. LENALIDOMIDE [Suspect]
     Active Substance: LENALIDOMIDE
     Indication: PRODUCT USED FOR UNKNOWN INDICATION
     Dosage: UNK
     Route: 065
     Dates: start: 201404
  6. EVEROLIMUS. [Suspect]
     Active Substance: EVEROLIMUS
     Dosage: 7.5 MG, UNK
     Route: 065
     Dates: start: 20181009
  7. IBRUTINIB [Suspect]
     Active Substance: IBRUTINIB
     Indication: PRODUCT USED FOR UNKNOWN INDICATION
     Dosage: UNK, IBRUTINIB DEC 2016-JUNE 2017 STOPPED DUE TO PROGRESSION XRT 7/19/2017 TO 8/1/2017 TO THE MASS
     Route: 065
     Dates: start: 201612, end: 201706
  8. NIVOLUMAB [Suspect]
     Active Substance: NIVOLUMAB
     Indication: PRODUCT USED FOR UNKNOWN INDICATION
     Dosage: UNK
     Route: 065
     Dates: start: 201412, end: 201501
  9. GEMCITABINE. [Suspect]
     Active Substance: GEMCITABINE
     Indication: PRODUCT USED FOR UNKNOWN INDICATION
     Dosage: UNK
     Route: 065
     Dates: start: 2013
  10. BENDAMUSTINE [Suspect]
     Active Substance: BENDAMUSTINE
     Indication: PRODUCT USED FOR UNKNOWN INDICATION
     Dosage: UNK
     Route: 065
     Dates: start: 201404, end: 20170913

REACTIONS (5)
  - Hypothyroidism [Recovered/Resolved]
  - Pulmonary hilum mass [Unknown]
  - Stomatitis [Unknown]
  - Disease progression [Unknown]
  - Mass [Unknown]

NARRATIVE: CASE EVENT DATE: 2014
